FAERS Safety Report 8610269-5 (Version None)
Quarter: 2012Q3

REPORT INFORMATION
  Report Type: 
  Country: None (occurrence: None)
  Receive Date: 20120810
  Receipt Date: 20120810
  Transmission Date: 20120928
  Serious: Yes (Other)
  Sender: FDA-Public Use
  Company Number: None

PATIENT
  Sex: Female
  Weight: 80.2867 kg

DRUGS (1)
  1. VIMPAT [Suspect]
     Indication: CONVULSION PROPHYLAXIS
     Dosage: 50 MG 3 PER DAY PO
     Route: 048
     Dates: start: 20120718, end: 20120801

REACTIONS (2)
  - STRESS [None]
  - DYSPNOEA [None]
